FAERS Safety Report 5063426-1 (Version None)
Quarter: 2006Q3

REPORT INFORMATION
  Report Type: 
  Country: None (occurrence: None)
  Receive Date: 20060727
  Receipt Date: 20060717
  Transmission Date: 20061208
  Serious: Yes (Other)
  Sender: FDA-Public Use
  Company Number: DE-AVENTIS-200612104DE

PATIENT
  Age: 27 Year
  Sex: Female

DRUGS (1)
  1. TRENTAL [Suspect]
     Indication: TINNITUS
     Dosage: DOSE: NOT REPORTED

REACTIONS (8)
  - DRUG EXPOSURE DURING PREGNANCY [None]
  - GENITAL INFECTION BACTERIAL [None]
  - HAEMORRHAGE [None]
  - PREMATURE LABOUR [None]
  - RETAINED PLACENTA OR MEMBRANES [None]
  - TACHYCARDIA [None]
  - UMBILICAL CORD ABNORMALITY [None]
  - VAGINAL INFECTION [None]
